FAERS Safety Report 9333984 (Version 1)
Quarter: 2013Q2

REPORT INFORMATION
  Report Type: Spontaneous
  Country: US (occurrence: US)
  Receive Date: 20130606
  Receipt Date: 20130606
  Transmission Date: 20140414
  Serious: Yes (Other)
  Sender: FDA-Public Use
  Company Number: US-AMGEN-USASP2013018826

PATIENT
  Sex: Female

DRUGS (7)
  1. PROLIA [Suspect]
     Indication: OSTEOPOROSIS POSTMENOPAUSAL
  2. LISINOPRIL [Concomitant]
  3. METOPROLOL [Concomitant]
  4. PRAVASTATIN [Concomitant]
  5. VENLAFAXINE [Concomitant]
  6. LANSOPRAZOLE [Concomitant]
  7. TRAZODONE [Concomitant]

REACTIONS (1)
  - Cellulitis [Recovered/Resolved]
